FAERS Safety Report 9880446 (Version 1)
Quarter: 2014Q1

REPORT INFORMATION
  Report Type: Report from Study
  Country: FR (occurrence: FR)
  Receive Date: 20140207
  Receipt Date: 20140207
  Transmission Date: 20141002
  Serious: Yes (Hospitalization, Other)
  Sender: FDA-Public Use
  Company Number: FR-ROCHE-1340859

PATIENT
  Sex: Female

DRUGS (8)
  1. RITUXIMAB [Suspect]
     Indication: RHEUMATOID ARTHRITIS
     Dosage: DAY 1
     Route: 065
     Dates: start: 20071029
  2. RITUXIMAB [Suspect]
     Dosage: DAY 15
     Route: 065
     Dates: start: 20071112
  3. RITUXIMAB [Suspect]
     Dosage: DAY 1
     Route: 065
     Dates: start: 20100527
  4. RITUXIMAB [Suspect]
     Dosage: DAY 15
     Route: 065
     Dates: start: 20100610
  5. RITUXIMAB [Suspect]
     Dosage: DAY 1
     Route: 065
     Dates: start: 20110510
  6. RITUXIMAB [Suspect]
     Dosage: DAY 15
     Route: 065
     Dates: start: 20110524
  7. SALAZOPYRINE [Concomitant]
     Route: 065
  8. CORTANCYL [Concomitant]
     Route: 065

REACTIONS (4)
  - Joint surgery [Recovered/Resolved with Sequelae]
  - Bronchiectasis [Not Recovered/Not Resolved]
  - Constipation [Not Recovered/Not Resolved]
  - Productive cough [Not Recovered/Not Resolved]
